FAERS Safety Report 7404507-4 (Version None)
Quarter: 2011Q2

REPORT INFORMATION
  Report Type: 
  Country: None (occurrence: None)
  Receive Date: 20110408
  Receipt Date: 20110404
  Transmission Date: 20111010
  Serious: Yes (Hospitalization)
  Sender: FDA-Public Use
  Company Number: DE-PFIZER INC-2011073695

PATIENT
  Age: 38 Year
  Sex: Female

DRUGS (7)
  1. IBUPROFEN [Suspect]
     Dosage: 800 MG, 1X/DAY
     Route: 048
     Dates: start: 20101206, end: 20101208
  2. CITALOPRAM [Suspect]
     Indication: DEPRESSION
     Dosage: 10 MG, 1X/DAY
     Route: 048
     Dates: start: 20101202
  3. SEROQUEL [Suspect]
     Indication: DEPRESSION
     Dosage: 50 MG, 1X/DAY
     Route: 048
     Dates: start: 20101202, end: 20101210
  4. SEROQUEL [Suspect]
     Dosage: 150 MG, 1X/DAY
     Route: 048
     Dates: start: 20101209, end: 20101210
  5. IBUPROFEN [Suspect]
     Dosage: 600 MG, 1X/DAY
     Route: 048
     Dates: start: 20101206, end: 20101208
  6. SALBUTAMOL [Concomitant]
     Dosage: 0.24 MG, 1X/DAY
     Route: 048
     Dates: start: 20000101
  7. SEROQUEL [Suspect]
     Dosage: 100 MG, 1X/DAY
     Route: 048
     Dates: start: 20101206, end: 20101208

REACTIONS (2)
  - OEDEMA [None]
  - PAIN IN EXTREMITY [None]
